FAERS Safety Report 10232751 (Version 1)
Quarter: 2014Q2

REPORT INFORMATION
  Report Type: Report from Study
  Country: TR (occurrence: TR)
  Receive Date: 20140612
  Receipt Date: 20140612
  Transmission Date: 20141212
  Serious: Yes (Hospitalization, Other)
  Sender: FDA-Public Use
  Company Number: TR-US-EMD SERONO, INC.-7296955

PATIENT
  Sex: Male
  Weight: 27 kg

DRUGS (1)
  1. SAIZEN [Suspect]
     Indication: GROWTH HORMONE DEFICIENCY

REACTIONS (3)
  - Femur fracture [Unknown]
  - Neoplasm [Unknown]
  - Mass [Unknown]
